FAERS Safety Report 8388084-X (Version None)
Quarter: 2012Q2

REPORT INFORMATION
  Report Type: 
  Country: None (occurrence: None)
  Receive Date: 20120525
  Receipt Date: 20120517
  Transmission Date: 20120825
  Serious: Yes (Other)
  Sender: FDA-Public Use
  Company Number: US-ASTRAZENECA-2012SE31786

PATIENT
  Age: 74 Year
  Sex: Female
  Weight: 54.4 kg

DRUGS (8)
  1. TRICOR [Concomitant]
     Indication: BLOOD TRIGLYCERIDES ABNORMAL
  2. SEROQUEL [Suspect]
     Indication: HALLUCINATION
     Route: 048
     Dates: start: 20120101
  3. CYMBALTA [Concomitant]
  4. ASPIRIN [Concomitant]
  5. AMANTADINE HCL [Concomitant]
  6. SEROQUEL [Suspect]
     Route: 048
     Dates: start: 20120101
  7. LIPITOR [Concomitant]
  8. ESTRADIOL [Concomitant]

REACTIONS (4)
  - CIRCUMSTANCE OR INFORMATION CAPABLE OF LEADING TO MEDICATION ERROR [None]
  - SOMNOLENCE [None]
  - UNRESPONSIVE TO STIMULI [None]
  - DRUG DOSE OMISSION [None]
